FAERS Safety Report 9017657 (Version 3)
Quarter: 2013Q1

REPORT INFORMATION
  Report Type: Spontaneous
  Country: US (occurrence: US)
  Receive Date: 20130117
  Receipt Date: 20130130
  Transmission Date: 20140127
  Serious: Yes (Other)
  Sender: FDA-Public Use
  Company Number: US-009507513-1301USA006057

PATIENT
  Sex: Female

DRUGS (1)
  1. SYLATRON [Suspect]
     Indication: MALIGNANT MELANOMA
     Route: 058

REACTIONS (1)
  - Malignant melanoma [Unknown]
